FAERS Safety Report 18198913 (Version 1)
Quarter: 2020Q3

REPORT INFORMATION
  Report Type: Spontaneous
  Country: DE (occurrence: DE)
  Receive Date: 20200826
  Receipt Date: 20200826
  Transmission Date: 20201103
  Serious: Yes (Life-Threatening, Hospitalization)
  Sender: FDA-Public Use
  Company Number: DE-TEVA-2020-DE-1819665

PATIENT
  Age: 87 Year
  Sex: Female

DRUGS (9)
  1. CLOPIDOGREL [Suspect]
     Active Substance: CLOPIDOGREL BISULFATE
     Dosage: 75 MILLIGRAM DAILY; 1?0?0?0
  2. MAGNESIUMSULFAT [Concomitant]
     Dosage: 1 DOSAGE FORMS DAILY; 0?0?0?1
  3. FLORADIX MIT EISEN [Concomitant]
     Dosage: 4.5 MILLIGRAM DAILY;  1?1?1?0
  4. PANTOPRAZOL [Concomitant]
     Active Substance: PANTOPRAZOLE SODIUM
     Dosage: 80 MILLIGRAM DAILY; 1?0?1?0
  5. ACETYLSALICYLSAURE [Suspect]
     Active Substance: ASPIRIN
     Dosage: 100 MILLIGRAM DAILY; 1?0?0?0
  6. BISOPROLOL [Concomitant]
     Active Substance: BISOPROLOL
     Dosage: 10 MILLIGRAM DAILY; 1?0?1?0
  7. KALIUM VERLA [Concomitant]
     Active Substance: POTASSIUM CITRATE
     Dosage: 1 DOSAGE FORMS DAILY; 1?0?0?0
  8. TORASEMID [Concomitant]
     Active Substance: TORSEMIDE
     Dosage: 5 MILLIGRAM DAILY;  1?0?0?0
  9. FERRO?SANOL DUODENAL [Concomitant]
     Active Substance: FERROUS GLYCINE SULFATE
     Dosage: 1 DOSAGE FORMS DAILY; 1?0?0?0

REACTIONS (9)
  - Fall [Unknown]
  - Haematochezia [Unknown]
  - Dizziness [Unknown]
  - Face injury [Unknown]
  - Wound [Unknown]
  - General physical health deterioration [Unknown]
  - Pallor [Unknown]
  - Haematemesis [Unknown]
  - Anaemia [Unknown]
